FAERS Safety Report 4996174-4 (Version None)
Quarter: 2006Q2

REPORT INFORMATION
  Report Type: 
  Country: None (occurrence: None)
  Receive Date: 20060504
  Receipt Date: 20060421
  Transmission Date: 20061013
  Serious: Yes (Hospitalization)
  Sender: FDA-Public Use
  Company Number: 2006041318

PATIENT
  Age: 77 Year
  Sex: Female
  Weight: 44.2 kg

DRUGS (9)
  1. VFEND [Suspect]
     Indication: PNEUMONITIS CRYPTOCOCCAL
     Dosage: 600 MG (300 MG, 2 IN 1 D), ORAL
     Route: 048
     Dates: start: 20060303, end: 20060317
  2. PREDNISOLONE [Concomitant]
  3. TIENAM          (CILASTATIN, IMIPENEM) [Concomitant]
  4. DIFLUCAN [Concomitant]
  5. NORVASC [Concomitant]
  6. LASIX [Concomitant]
  7. CLARITHROMYCIN [Concomitant]
  8. SIGMART           (NICORANDIL) [Concomitant]
  9. OMEPRAZOLE [Concomitant]

REACTIONS (6)
  - ANOREXIA [None]
  - HEPATIC FUNCTION ABNORMAL [None]
  - NAUSEA [None]
  - ORAL INTAKE REDUCED [None]
  - SHUNT OCCLUSION [None]
  - SHUNT THROMBOSIS [None]
